FAERS Safety Report 16265830 (Version 4)
Quarter: 2020Q1

REPORT INFORMATION
  Report Type: Spontaneous
  Country: FR (occurrence: FR)
  Receive Date: 20190502
  Receipt Date: 20200312
  Transmission Date: 20200409
  Serious: Yes (Death, Hospitalization, Other)
  Sender: FDA-Public Use
  Company Number: FR-MYLANLABS-2019M1042202

PATIENT
  Age: 58 Year
  Sex: Male

DRUGS (7)
  1. CALCIUM FOLINATE [Suspect]
     Active Substance: LEUCOVORIN CALCIUM
     Indication: LINITIS PLASTICA
     Dosage: 1 (UNK UNK, CYCLIC)
  2. INFLIXIMAB [Suspect]
     Active Substance: INFLIXIMAB
     Dosage: UNK
     Dates: start: 2017
  3. OXALIPLATIN. [Suspect]
     Active Substance: OXALIPLATIN
     Indication: LINITIS PLASTICA
     Dosage: 1 (UNK UNK), CYCLE
  4. FLUOROURACIL. [Suspect]
     Active Substance: FLUOROURACIL
     Indication: LINITIS PLASTICA
     Dosage: 1 (UNK UNK, CYCLIC)
  5. MERCAPTOPURINE. [Concomitant]
     Active Substance: MERCAPTOPURINE
     Indication: COLITIS ULCERATIVE
     Dosage: UNK
     Dates: start: 201012
  6. INFLIXIMAB [Suspect]
     Active Substance: INFLIXIMAB
     Indication: COLITIS ULCERATIVE
     Dosage: UNK
     Dates: start: 201012
  7. FOLINIC ACID [Suspect]
     Active Substance: LEUCOVORIN
     Indication: LINITIS PLASTICA
     Dosage: 1 UNK, CYCLE

REACTIONS (2)
  - Febrile neutropenia [Fatal]
  - Septic shock [Fatal]
